FAERS Safety Report 6609610-4 (Version None)
Quarter: 2010Q1

REPORT INFORMATION
  Report Type: 
  Country: None (occurrence: None)
  Receive Date: 20100224
  Receipt Date: 20100216
  Transmission Date: 20100710
  Serious: Yes (Hospitalization)
  Sender: FDA-Public Use
  Company Number: 510032

PATIENT
  Age: 68 Year
  Sex: Female

DRUGS (4)
  1. PACLITAXEL [Suspect]
     Indication: BREAST CANCER
  2. DOXORUBICIN HCL [Suspect]
     Indication: BREAST CANCER
  3. CYCLOPHOSPHAMIDE [Suspect]
     Indication: BREAST CANCER
  4. (PEGFILGRASTIM) [Concomitant]

REACTIONS (3)
  - FEBRILE NEUTROPENIA [None]
  - METHAEMOGLOBINAEMIA [None]
  - PNEUMOCYSTIS JIROVECI PNEUMONIA [None]
